FAERS Safety Report 8459650-8 (Version None)
Quarter: 2012Q2

REPORT INFORMATION
  Report Type: 
  Country: None (occurrence: None)
  Receive Date: 20120622
  Receipt Date: 20120618
  Transmission Date: 20120825
  Serious: Yes (Death, Hospitalization, Other)
  Sender: FDA-Public Use
  Company Number: FR-ASTRAZENECA-2009SE03637

PATIENT
  Age: 24278 Day
  Sex: Male

DRUGS (8)
  1. PAROXETINE HCL [Suspect]
     Indication: DEPRESSION
     Route: 048
     Dates: start: 20090412
  2. SOLU-MEDROL [Suspect]
     Indication: DECREASED APPETITE
     Dosage: 40MG/2ML
     Route: 042
     Dates: start: 20090413
  3. NEXIUM [Suspect]
     Indication: OESOPHAGITIS
     Route: 042
     Dates: start: 20090413, end: 20090420
  4. MORPHINE SULFATE [Suspect]
     Route: 048
     Dates: start: 20090217
  5. ATARAX [Suspect]
     Indication: INSOMNIA
     Dosage: 100MG/2ML
     Route: 042
     Dates: start: 20090413
  6. SCOPOLAMINE [Suspect]
     Route: 061
     Dates: start: 20090306
  7. RADIOTHERAPY [Concomitant]
     Indication: TONSIL CANCER
  8. DURAGESIC-100 [Suspect]
     Dosage: 1 PATCH DAILY
     Route: 061
     Dates: start: 20090414

REACTIONS (2)
  - THROMBOCYTOPENIA [None]
  - ANAEMIA [None]
